FAERS Safety Report 4663951-9 (Version None)
Quarter: 2005Q2

REPORT INFORMATION
  Report Type: 
  Country: None (occurrence: None)
  Receive Date: 20050503
  Receipt Date: 20050419
  Transmission Date: 20051028
  Serious: No
  Sender: FDA-Public Use
  Company Number: 2005UW04979

PATIENT

DRUGS (1)
  1. CRESTOR [Suspect]

REACTIONS (1)
  - RENAL FAILURE [None]
